FAERS Safety Report 18273452 (Version 35)
Quarter: 2025Q3

REPORT INFORMATION
  Report Type: Report from Study
  Country: US (occurrence: US)
  Receive Date: 20200916
  Receipt Date: 20250825
  Transmission Date: 20251021
  Serious: Yes (Hospitalization, Other)
  Sender: TAKEDA
  Company Number: US-SHIRE-US202029950

PATIENT
  Age: 74 Year
  Sex: Female
  Weight: 85 kg

DRUGS (54)
  1. HUMAN IMMUNOGLOBULIN G [Suspect]
     Active Substance: HUMAN IMMUNOGLOBULIN G
     Indication: Immunodeficiency common variable
     Dosage: 14 GRAM, Q2WEEKS
     Dates: start: 20170622
  2. HUMAN IMMUNOGLOBULIN G [Suspect]
     Active Substance: HUMAN IMMUNOGLOBULIN G
     Dosage: 16 GRAM, Q2WEEKS
  3. HUMAN IMMUNOGLOBULIN G [Suspect]
     Active Substance: HUMAN IMMUNOGLOBULIN G
     Dosage: 17 GRAM, Q2WEEKS
  4. HUMAN IMMUNOGLOBULIN G [Suspect]
     Active Substance: HUMAN IMMUNOGLOBULIN G
     Dosage: 14 GRAM, Q2WEEKS
  5. AMOXICILLIN [Suspect]
     Active Substance: AMOXICILLIN
     Indication: Product used for unknown indication
  6. PENICILLIN [Suspect]
     Active Substance: PENICILLIN
     Indication: Product used for unknown indication
  7. EPINEPHRINE [Concomitant]
     Active Substance: EPINEPHRINE
  8. ACETAMINOPHEN [Concomitant]
     Active Substance: ACETAMINOPHEN
  9. AMBIEN [Concomitant]
     Active Substance: ZOLPIDEM TARTRATE
  10. ATORVASTATIN CALCIUM [Concomitant]
     Active Substance: ATORVASTATIN CALCIUM
  11. OMEPRAZOLE [Concomitant]
     Active Substance: OMEPRAZOLE
  12. ACYCLOVIR [Concomitant]
     Active Substance: ACYCLOVIR
  13. FLUTICASONE PROPIONATE [Concomitant]
     Active Substance: FLUTICASONE PROPIONATE
  14. CYCLOBENZAPRINE [Concomitant]
     Active Substance: CYCLOBENZAPRINE
  15. EPINASTINE HYDROCHLORIDE [Concomitant]
     Active Substance: EPINASTINE HYDROCHLORIDE
  16. OXYCODONE HYDROCHLORIDE [Concomitant]
     Active Substance: OXYCODONE HYDROCHLORIDE
  17. METHOCARBAMOL [Concomitant]
     Active Substance: METHOCARBAMOL
  18. HYDROMORPHONE [Concomitant]
     Active Substance: HYDROMORPHONE
  19. MORPHINE SULFATE [Concomitant]
     Active Substance: MORPHINE SULFATE
  20. AZELASTINE HYDROCHLORIDE [Concomitant]
     Active Substance: AZELASTINE HYDROCHLORIDE
  21. ALBUTEROL SULFATE [Concomitant]
     Active Substance: ALBUTEROL SULFATE
  22. CALCIUM\CHOLECALCIFEROL [Concomitant]
     Active Substance: CALCIUM\CHOLECALCIFEROL
  23. CLOTRIMAZOLE [Concomitant]
     Active Substance: CLOTRIMAZOLE
  24. GABAPENTIN [Concomitant]
     Active Substance: GABAPENTIN
  25. ALENDRONATE SODIUM [Concomitant]
     Active Substance: ALENDRONATE SODIUM
  26. VITAMIN D3 [Concomitant]
     Active Substance: CHOLECALCIFEROL
  27. LIDOCAINE [Concomitant]
     Active Substance: LIDOCAINE
  28. ASPIRIN [Concomitant]
     Active Substance: ASPIRIN
  29. PROAIR HFA [Concomitant]
     Active Substance: ALBUTEROL SULFATE
  30. DIPHENHYDRAMINE HYDROCHLORIDE [Concomitant]
     Active Substance: DIPHENHYDRAMINE HYDROCHLORIDE
  31. DILTIAZEM [Concomitant]
     Active Substance: DILTIAZEM
  32. HYDROXYZINE HYDROCHLORIDE [Concomitant]
     Active Substance: HYDROXYZINE HYDROCHLORIDE
  33. SENNA [Concomitant]
     Active Substance: SENNOSIDES
  34. SYMBICORT [Concomitant]
     Active Substance: BUDESONIDE\FORMOTEROL FUMARATE DIHYDRATE
  35. ONDANSETRON HYDROCHLORIDE [Concomitant]
     Active Substance: ONDANSETRON HYDROCHLORIDE
  36. HYDROCHLOROTHIAZIDE [Concomitant]
     Active Substance: HYDROCHLOROTHIAZIDE
  37. FIORICET WITH CODEINE [Concomitant]
     Active Substance: ACETAMINOPHEN\BUTALBITAL\CAFFEINE\CODEINE PHOSPHATE
  38. STOOL SOFTENER (DOCUSATE) [Concomitant]
     Active Substance: DOCUSATE
  39. DIPHENHYDRAMINE [Concomitant]
     Active Substance: DIPHENHYDRAMINE
  40. Lmx [Concomitant]
  41. MORPHINE [Concomitant]
     Active Substance: MORPHINE
  42. HYDROXYZINE [Concomitant]
     Active Substance: HYDROXYZINE HYDROCHLORIDE
  43. ALBUTEROL [Concomitant]
     Active Substance: ALBUTEROL
  44. EPINASTINE [Concomitant]
     Active Substance: EPINASTINE HYDROCHLORIDE
  45. AZELASTINE [Concomitant]
     Active Substance: AZELASTINE
  46. FLONASE [Concomitant]
     Active Substance: FLUTICASONE PROPIONATE
  47. OXYCODONE [Concomitant]
     Active Substance: OXYCODONE
  48. ONDANSETRON [Concomitant]
     Active Substance: ONDANSETRON
  49. ATORVASTATIN [Concomitant]
     Active Substance: ATORVASTATIN
  50. HYDROCHLOROTHIAZIDE [Concomitant]
     Active Substance: HYDROCHLOROTHIAZIDE
  51. OXYCODONE AND ACETAMINOPHEN [Concomitant]
     Active Substance: ACETAMINOPHEN\OXYCODONE HYDROCHLORIDE
  52. ELIQUIS [Concomitant]
     Active Substance: APIXABAN
  53. BREYNA [Concomitant]
     Active Substance: BUDESONIDE\FORMOTEROL FUMARATE
  54. PROMETHAZINE HYDROCHLORIDE [Concomitant]
     Active Substance: PROMETHAZINE HYDROCHLORIDE

REACTIONS (34)
  - Staphylococcal infection [Unknown]
  - Postoperative thrombosis [Unknown]
  - Dermatitis contact [Unknown]
  - Drug hypersensitivity [Recovered/Resolved]
  - Osteoporosis [Unknown]
  - Illness [Unknown]
  - Fungal infection [Unknown]
  - Cyst [Unknown]
  - Skin discomfort [Unknown]
  - Tooth abscess [Unknown]
  - Pelvic organ prolapse [Unknown]
  - Urinary tract infection [Unknown]
  - Infusion site discharge [Unknown]
  - Insurance issue [Unknown]
  - Product use issue [Unknown]
  - Inappropriate schedule of product administration [Unknown]
  - Product dose omission issue [Unknown]
  - Suture related complication [Unknown]
  - Bronchitis [Not Recovered/Not Resolved]
  - Respiratory syncytial virus infection [Unknown]
  - Eye infection [Unknown]
  - Incorrect drug administration rate [Unknown]
  - Upper respiratory tract infection [Not Recovered/Not Resolved]
  - Asthma [Not Recovered/Not Resolved]
  - Infusion site haemorrhage [Unknown]
  - Dermatitis allergic [Unknown]
  - Contusion [Unknown]
  - Vertigo [Unknown]
  - Rash [Unknown]
  - Pain [Unknown]
  - Vomiting [Unknown]
  - Diarrhoea [Unknown]
  - Fatigue [Unknown]
  - Headache [Unknown]

NARRATIVE: CASE EVENT DATE: 20211207
